FAERS Safety Report 25039318 (Version 1)
Quarter: 2025Q1

REPORT INFORMATION
  Report Type: Spontaneous
  Country: US (occurrence: US)
  Receive Date: 20250305
  Receipt Date: 20250305
  Transmission Date: 20250409
  Serious: No
  Sender: GLENMARK
  Company Number: US-GLENMARK PHARMACEUTICALS-2024GMK090241

PATIENT

DRUGS (1)
  1. ATOVAQUONE\PROGUANIL HYDROCHLORIDE [Suspect]
     Active Substance: ATOVAQUONE\PROGUANIL HYDROCHLORIDE
     Indication: Babesiosis
     Dosage: 1 DOSAGE FORM, BID (ONE TABLET IN THE MORNING AND ONE TABLET IN THE EVENING)
     Route: 048
     Dates: start: 20240405, end: 20240406

REACTIONS (2)
  - Allergic reaction to excipient [Recovered/Resolved]
  - Product use in unapproved indication [Unknown]

NARRATIVE: CASE EVENT DATE: 20240405
